FAERS Safety Report 4839854-3 (Version None)
Quarter: 2005Q4

REPORT INFORMATION
  Report Type: 
  Country: None (occurrence: None)
  Receive Date: 20051129
  Receipt Date: 20050922
  Transmission Date: 20060501
  Serious: Yes (Hospitalization)
  Sender: FDA-Public Use
  Company Number: DE-ROCHE-418550

PATIENT
  Age: 48 Year
  Sex: Male
  Weight: 85 kg

DRUGS (5)
  1. PEG-INTERFERON ALFA 2A (RO 25-8310) [Suspect]
     Route: 058
     Dates: start: 20040715, end: 20051108
  2. RIBAVIRIN [Suspect]
     Route: 048
     Dates: start: 20040715, end: 20050910
  3. RIBAVIRIN [Suspect]
     Route: 048
     Dates: start: 20050913, end: 20051108
  4. BISOPROLOL [Concomitant]
  5. PANTOZOL [Concomitant]
     Dates: start: 20051005

REACTIONS (3)
  - CHOLANGIOLITIS [None]
  - CHOLECYSTITIS [None]
  - GASTRITIS [None]
